FAERS Safety Report 9829858 (Version 3)
Quarter: 2014Q1

REPORT INFORMATION
  Report Type: Spontaneous
  Country: US (occurrence: US)
  Receive Date: 20140120
  Receipt Date: 20140205
  Transmission Date: 20141002
  Serious: Yes (Hospitalization)
  Sender: FDA-Public Use
  Company Number: US-ROCHE-1316195

PATIENT
  Sex: Male

DRUGS (1)
  1. TNKASE [Suspect]
     Indication: THROMBOLYSIS
     Route: 042
     Dates: start: 20131204, end: 20140104

REACTIONS (4)
  - Blood fibrinogen abnormal [Unknown]
  - Haematoma [Unknown]
  - Catheter site haemorrhage [Unknown]
  - Blood fibrinogen decreased [Unknown]
